FAERS Safety Report 4679028-2 (Version None)
Quarter: 2005Q2

REPORT INFORMATION
  Report Type: 
  Country: None (occurrence: None)
  Receive Date: 20050531
  Receipt Date: 20050519
  Transmission Date: 20051028
  Serious: Yes (Other)
  Sender: FDA-Public Use
  Company Number: MED000180

PATIENT
  Age: 21 Year
  Sex: Female

DRUGS (1)
  1. LACTATED RINGER'S [Suspect]
     Indication: FLUID REPLACEMENT
     Dosage: 500 CC; BID; INTRAVENOUS
     Route: 042
     Dates: start: 20050515, end: 20050515

REACTIONS (3)
  - FLUSHING [None]
  - RASH GENERALISED [None]
  - SENSATION OF FOREIGN BODY [None]
